FAERS Safety Report 22352970 (Version 1)
Quarter: 2023Q2

REPORT INFORMATION
  Report Type: Spontaneous
  Country: US (occurrence: US)
  Receive Date: 20230523
  Receipt Date: 20230523
  Transmission Date: 20230721
  Serious: No
  Sender: FDA-Public Use
  Company Number: US-009507513-2305USA006116

PATIENT
  Age: 65 Year
  Sex: Male

DRUGS (7)
  1. BELSOMRA [Suspect]
     Active Substance: SUVOREXANT
     Indication: Insomnia
     Dosage: 1X DAILY
     Route: 048
     Dates: start: 20230511
  2. BELSOMRA [Suspect]
     Active Substance: SUVOREXANT
     Indication: Insomnia
     Dosage: UNK
     Route: 048
     Dates: start: 20230511
  3. CRESTOR [Concomitant]
     Active Substance: ROSUVASTATIN CALCIUM
  4. LISINOPRIL [Concomitant]
     Active Substance: LISINOPRIL
  5. COREG [Concomitant]
     Active Substance: CARVEDILOL
  6. IRON [Concomitant]
     Active Substance: IRON
  7. VITAMINS [Concomitant]
     Active Substance: VITAMINS

REACTIONS (2)
  - Drug ineffective [Not Recovered/Not Resolved]
  - Inability to afford medication [Unknown]

NARRATIVE: CASE EVENT DATE: 20230501
